FAERS Safety Report 8481510-7 (Version None)
Quarter: 2012Q3

REPORT INFORMATION
  Report Type: 
  Country: None (occurrence: None)
  Receive Date: 20120702
  Receipt Date: 20120620
  Transmission Date: 20120928
  Serious: Yes (Hospitalization)
  Sender: FDA-Public Use
  Company Number: JP-VERTEX PHARMACEUTICALS INC.-AE-2012-004425

PATIENT
  Age: 60 Year
  Sex: Male

DRUGS (14)
  1. PEGINTERFERON ALFA-2B [Concomitant]
     Route: 058
     Dates: start: 20120328
  2. RIBAVIRIN [Concomitant]
     Route: 048
     Dates: start: 20120404
  3. URSO 250 [Concomitant]
     Route: 048
  4. PEGINTERFERON ALFA-2B [Concomitant]
     Route: 058
     Dates: start: 20120321
  5. TELAVIC (TELAPREVIR) [Suspect]
     Route: 048
     Dates: start: 20120317, end: 20120522
  6. VALSARTAN  AND HYDROCHLOROTHIAZIDE [Concomitant]
     Route: 048
  7. BEZAFIBRATE [Concomitant]
     Route: 048
  8. EPINAZION [Concomitant]
     Route: 048
  9. RIBAVIRIN [Concomitant]
     Route: 048
     Dates: start: 20120317, end: 20120403
  10. AMARYL [Concomitant]
     Route: 048
  11. PEGINTERFERON ALFA-2B [Concomitant]
     Indication: HEPATITIS C
     Route: 058
     Dates: start: 20120229, end: 20120314
  12. NESINA [Concomitant]
     Route: 048
  13. TELAVIC (TELAPREVIR) [Suspect]
     Indication: HEPATITIS C
     Route: 048
     Dates: start: 20120229, end: 20120316
  14. RIBAVIRIN [Concomitant]
     Indication: HEPATITIS C
     Route: 048
     Dates: start: 20120229, end: 20120316

REACTIONS (1)
  - MALAISE [None]
